FAERS Safety Report 21570525 (Version 3)
Quarter: 2022Q4

REPORT INFORMATION
  Report Type: Spontaneous
  Country: JP (occurrence: JP)
  Receive Date: 20221109
  Receipt Date: 20221219
  Transmission Date: 20230112
  Serious: Yes (Hospitalization, Other)
  Sender: FDA-Public Use
  Company Number: JP-MSD-M2022-47368

PATIENT
  Age: 81 Year
  Sex: Male

DRUGS (12)
  1. LAGEVRIO [Suspect]
     Active Substance: MOLNUPIRAVIR
     Indication: COVID-19 treatment
     Dosage: 800 MILLIGRAM, BID
     Route: 048
     Dates: start: 20220824, end: 20220828
  2. ENALAPRIL MALEATE [Suspect]
     Active Substance: ENALAPRIL MALEATE
     Dosage: 25 MILLIGRAM, QD
     Route: 065
  3. NAFTOPIDIL [Suspect]
     Active Substance: NAFTOPIDIL
     Dosage: 25 MILLIGRAM, QD
     Route: 065
  4. SPIRONOLACTONE [Suspect]
     Active Substance: SPIRONOLACTONE
     Dosage: 50 MILLIGRAM, QD
     Route: 065
  5. TRICLOFOS SODIUM [Suspect]
     Active Substance: TRICLOFOS SODIUM
     Dosage: 10 MILLILITER, QD
     Route: 048
  6. FEBUXOSTAT [Suspect]
     Active Substance: FEBUXOSTAT
     Dosage: 20 MILLIGRAM, QD
     Route: 065
  7. SAMSCA [Suspect]
     Active Substance: TOLVAPTAN
     Dosage: 15 MILLIGRAM, QD
     Route: 048
  8. VILDAGLIPTIN [Suspect]
     Active Substance: VILDAGLIPTIN
     Dosage: 50 MILLIGRAM, BID
     Route: 065
  9. PIMOBENDAN [Suspect]
     Active Substance: PIMOBENDAN
     Dosage: 2.5 MILLIGRAM, QD
     Route: 065
  10. ELIQUIS [Suspect]
     Active Substance: APIXABAN
     Dosage: 5 MILLIGRAM, BID
     Route: 065
  11. CARVEDILOL [Suspect]
     Active Substance: CARVEDILOL
     Dosage: 10 MILLIGRAM, QD
     Route: 065
  12. BROTIZOLAM [Suspect]
     Active Substance: BROTIZOLAM
     Dosage: 0.25 MILLIGRAM, QD
     Route: 065

REACTIONS (2)
  - COVID-19 pneumonia [Recovering/Resolving]
  - Abnormal behaviour [Recovered/Resolved]

NARRATIVE: CASE EVENT DATE: 20220828
